FAERS Safety Report 5061340-9 (Version None)
Quarter: 2006Q3

REPORT INFORMATION
  Report Type: 
  Country: None (occurrence: None)
  Receive Date: 20060719
  Receipt Date: 20060719
  Transmission Date: 20061208
  Serious: Yes (Other)
  Sender: FDA-Public Use
  Company Number: None

PATIENT
  Sex: Female
  Weight: 76.9754 kg

DRUGS (1)
  1. METFORMIN  500MG BID 2-6-03 [Suspect]
     Indication: DIABETES MELLITUS NON-INSULIN-DEPENDENT
     Dosage: 500 MG BID PO
     Route: 048

REACTIONS (1)
  - ABDOMINAL PAIN [None]
